FAERS Safety Report 6562715-9 (Version None)
Quarter: 2010Q1

REPORT INFORMATION
  Report Type: 
  Country: None (occurrence: None)
  Receive Date: 20100130
  Receipt Date: 20091116
  Transmission Date: 20100710
  Serious: No
  Sender: FDA-Public Use
  Company Number: US-ABBOTT-09P-163-0609099-00

PATIENT
  Sex: Male
  Weight: 81.72 kg

DRUGS (13)
  1. HUMIRA [Suspect]
     Indication: RHEUMATOID ARTHRITIS
     Dates: start: 20091001
  2. GEMFIBRIZOLE [Concomitant]
     Indication: BLOOD CHOLESTEROL INCREASED
  3. SIMVASTATIN [Concomitant]
     Indication: BLOOD CHOLESTEROL INCREASED
  4. FOLIC ACID [Concomitant]
     Indication: RHEUMATOID ARTHRITIS
  5. DICLOPENIC [Concomitant]
     Indication: DRUG USE FOR UNKNOWN INDICATION
  6. PANTOPRAZOLE [Concomitant]
     Indication: DRUG USE FOR UNKNOWN INDICATION
  7. METHADONE [Concomitant]
     Indication: INTERVERTEBRAL DISC DEGENERATION
  8. ZANTAC [Concomitant]
     Indication: DRUG USE FOR UNKNOWN INDICATION
  9. BUPROPION HCL [Concomitant]
     Indication: EX-TOBACCO USER
  10. CALCIUM [Concomitant]
     Indication: MINERAL SUPPLEMENTATION
  11. VITAMIN D [Concomitant]
     Indication: VITAMIN SUPPLEMENTATION
  12. DIAZAPAM [Concomitant]
     Indication: MUSCLE SPASMS
  13. NEURONTIN [Concomitant]
     Indication: NEURALGIA

REACTIONS (2)
  - OEDEMA PERIPHERAL [None]
  - SINUSITIS [None]
